FAERS Safety Report 9183479 (Version 1)
Quarter: 2013Q1

REPORT INFORMATION
  Report Type: Spontaneous
  Country: US (occurrence: US)
  Receive Date: 20130322
  Receipt Date: 20130322
  Transmission Date: 20140127
  Serious: No
  Sender: FDA-Public Use
  Company Number: US-B.I. PHARMACEUTICALS,INC./RIDGEFIELD-2013-BI-07083BP

PATIENT
  Sex: Male
  Weight: 100 kg

DRUGS (8)
  1. SPIRIVA [Suspect]
     Indication: CHRONIC OBSTRUCTIVE PULMONARY DISEASE
     Dosage: 18 MCG
     Route: 055
     Dates: start: 201301
  2. MAGNAESIUM [Concomitant]
     Dosage: 700 MG
     Route: 048
  3. GLIPIZIDE [Concomitant]
     Indication: DIABETES MELLITUS
     Dosage: 5 MG
     Route: 048
  4. XARELTO [Concomitant]
     Indication: ATRIAL FIBRILLATION
     Dosage: 20 MG
     Route: 048
  5. CARVEDILOL [Concomitant]
     Indication: ATRIAL FIBRILLATION
     Dosage: 3.125 MG
     Route: 048
  6. DIGOXIN [Concomitant]
     Indication: ATRIAL FIBRILLATION
     Dosage: 0.125 MG
     Route: 048
  7. TIKOSYN [Concomitant]
     Indication: ATRIAL FIBRILLATION
     Dosage: 500 MCG
     Route: 048
  8. LIPITOR [Concomitant]
     Indication: BLOOD CHOLESTEROL INCREASED
     Dosage: 10 MG
     Route: 048

REACTIONS (3)
  - Dry mouth [Not Recovered/Not Resolved]
  - Epistaxis [Not Recovered/Not Resolved]
  - Nasal congestion [Not Recovered/Not Resolved]
